FAERS Safety Report 16148927 (Version 1)
Quarter: 2019Q2

REPORT INFORMATION
  Report Type: Spontaneous
  Country: FR (occurrence: FR)
  Receive Date: 20190402
  Receipt Date: 20190402
  Transmission Date: 20190711
  Serious: Yes (Hospitalization)
  Sender: FDA-Public Use
  Company Number: FR-ALLERGAN-1914261US

PATIENT
  Sex: Female

DRUGS (3)
  1. BOTOX [Suspect]
     Active Substance: ONABOTULINUMTOXINA
     Dosage: 100 UNITS, SINGLE, UNILATERAL PAROTID GLAND INFILTRATION TO PAROTID GLAND
     Dates: start: 201605, end: 201605
  2. BOTOX [Suspect]
     Active Substance: ONABOTULINUMTOXINA
     Dosage: 100 UNITS, SINGLE, UNILATERAL PAROTID GLAND INFILTRATION TO PAROTID GLAND
     Dates: start: 201611, end: 201611
  3. BOTOX [Suspect]
     Active Substance: ONABOTULINUMTOXINA
     Indication: SIALECTASIA
     Dosage: 100 UNITS, SINGLE, UNILATERAL PAROTID GLAND INFILTRATION TO PAROTID GLAND
     Dates: start: 201707, end: 201707

REACTIONS (2)
  - Parotitis [Recovered/Resolved]
  - Off label use [Unknown]
